FAERS Safety Report 7592148-8 (Version None)
Quarter: 2011Q3

REPORT INFORMATION
  Report Type: 
  Country: None (occurrence: None)
  Receive Date: 20110705
  Receipt Date: 20110705
  Transmission Date: 20111222
  Serious: No
  Sender: FDA-Public Use
  Company Number: None

PATIENT
  Age: 63 Year
  Sex: Female
  Weight: 81.6475 kg

DRUGS (1)
  1. BONIVA [Suspect]
     Indication: BONE DENSITY DECREASED
     Dosage: 1 ONCE A MONTH
     Dates: start: 20110702, end: 20110702

REACTIONS (4)
  - CHEST PAIN [None]
  - ARTHRALGIA [None]
  - BACK PAIN [None]
  - PAIN [None]
